FAERS Safety Report 14470878 (Version 1)
Quarter: 2018Q1

REPORT INFORMATION
  Report Type: Spontaneous
  Country: US (occurrence: US)
  Receive Date: 20180130
  Receipt Date: 20180130
  Transmission Date: 20180509
  Serious: No
  Sender: FDA-Public Use
  Company Number: None

PATIENT
  Age: 57 Year
  Sex: Female
  Weight: 108 kg

DRUGS (4)
  1. CONTRAVE [Suspect]
     Active Substance: BUPROPION HYDROCHLORIDE\NALTREXONE HYDROCHLORIDE
     Indication: FOOD CRAVING
     Dosage: ?          QUANTITY:3 TABLET(S);OTHER FREQUENCY:2 IN AM, 1 IN PM;?
     Route: 048
     Dates: start: 20180108, end: 20180130
  2. VITAMIN D [Concomitant]
     Active Substance: CHOLECALCIFEROL
  3. VENLAFAXINE [Concomitant]
     Active Substance: VENLAFAXINE HYDROCHLORIDE
  4. CALCIUM [Concomitant]
     Active Substance: CALCIUM

REACTIONS (1)
  - Urticaria [None]

NARRATIVE: CASE EVENT DATE: 20180127
